FAERS Safety Report 9344101 (Version 1)
Quarter: 2013Q2

REPORT INFORMATION
  Report Type: Spontaneous
  Country: US (occurrence: None)
  Receive Date: 20130610
  Receipt Date: 20130610
  Transmission Date: 20140414
  Serious: Yes (Hospitalization)
  Sender: FDA-Public Use
  Company Number: B0897149A

PATIENT
  Age: 5 Day
  Sex: Female
  Weight: 4.81 kg

DRUGS (2)
  1. CALCIUM CARBONATE [Suspect]
     Indication: VOMITING IN PREGNANCY
     Route: 064
  2. PRENATAL VITAMINS [Concomitant]

REACTIONS (12)
  - Maternal drugs affecting foetus [None]
  - Choking [None]
  - Retching [None]
  - Convulsion [None]
  - Oxygen saturation decreased [None]
  - Agitation neonatal [None]
  - Hypocalcaemic seizure [None]
  - Blood phosphorus increased [None]
  - Tetany [None]
  - Neonatal hypoparathyroidism [None]
  - Partial seizures [None]
  - Meconium stain [None]
